FAERS Safety Report 12950956 (Version 2)
Quarter: 2016Q4

REPORT INFORMATION
  Report Type: Spontaneous
  Country: DE (occurrence: DE)
  Receive Date: 20161116
  Receipt Date: 20161121
  Transmission Date: 20170207
  Serious: Yes (Hospitalization)
  Sender: FDA-Public Use
  Company Number: DE-BIOGEN-2016BI00317825

PATIENT
  Age: 45 Year
  Sex: Male

DRUGS (7)
  1. TRIAMCINOLONE [Concomitant]
     Active Substance: TRIAMCINOLONE
     Indication: PRODUCT USED FOR UNKNOWN INDICATION
     Route: 037
     Dates: start: 201511
  2. TRIAMCINOLONE [Concomitant]
     Active Substance: TRIAMCINOLONE
     Route: 037
     Dates: start: 201603
  3. NOVAMINSULFONE [Concomitant]
     Indication: HEADACHE
     Route: 065
     Dates: start: 20160806
  4. FAMPYRA [Suspect]
     Active Substance: DALFAMPRIDINE
     Indication: GAIT SPASTIC
     Route: 048
     Dates: start: 20111004, end: 20160930
  5. TRIAMCINOLONE [Concomitant]
     Active Substance: TRIAMCINOLONE
     Route: 037
     Dates: start: 201601
  6. TRIAMCINOLONE [Concomitant]
     Active Substance: TRIAMCINOLONE
     Route: 037
     Dates: start: 201605
  7. TRIAMCINOLONE [Concomitant]
     Active Substance: TRIAMCINOLONE
     Route: 037
     Dates: start: 201608

REACTIONS (1)
  - Subdural hygroma [Recovered/Resolved]

NARRATIVE: CASE EVENT DATE: 20160822
